FAERS Safety Report 22144244 (Version 2)
Quarter: 2023Q1

REPORT INFORMATION
  Report Type: Report from Study
  Country: US (occurrence: US)
  Receive Date: 20230328
  Receipt Date: 20230330
  Transmission Date: 20230417
  Serious: No
  Sender: FDA-Public Use
  Company Number: US-ABBVIE-4701156

PATIENT
  Age: 67 Year
  Sex: Female
  Weight: 77.11 kg

DRUGS (4)
  1. SKYRIZI [Suspect]
     Active Substance: RISANKIZUMAB-RZAA
     Indication: Psoriatic arthropathy
     Dosage: FORM STRENGTH: 150  MG
     Route: 058
  2. SKYRIZI [Suspect]
     Active Substance: RISANKIZUMAB-RZAA
     Dosage: LAST ADMIN DATE 2020, FORM STRENGTH: 150  MG
     Route: 058
     Dates: start: 202001
  3. SKYRIZI [Suspect]
     Active Substance: RISANKIZUMAB-RZAA
     Dosage: FORM STRENGTH: 150  MG
     Route: 058
     Dates: start: 202004
  4. SKYRIZI [Suspect]
     Active Substance: RISANKIZUMAB-RZAA
     Dosage: FORM STRENGTH: 150  MG
     Route: 058
     Dates: start: 20191226, end: 20191226

REACTIONS (2)
  - Precancerous skin lesion [Not Recovered/Not Resolved]
  - Precancerous skin lesion [Not Recovered/Not Resolved]

NARRATIVE: CASE EVENT DATE: 20221201
